FAERS Safety Report 10248768 (Version 3)
Quarter: 2014Q3

REPORT INFORMATION
  Report Type: Spontaneous
  Country: JP (occurrence: JP)
  Receive Date: 20140620
  Receipt Date: 20140716
  Transmission Date: 20150326
  Serious: Yes (Death, Other)
  Sender: FDA-Public Use
  Company Number: JP-ELI_LILLY_AND_COMPANY-JP201406005123

PATIENT
  Age: 85 Year
  Sex: Male
  Weight: 59 kg

DRUGS (2)
  1. TS 1 [Suspect]
     Active Substance: GIMERACIL\OTERACIL POTASSIUM\TEGAFUR
     Indication: PANCREATIC CARCINOMA STAGE IV
     Dosage: 80 UNK, UNK
     Route: 065
  2. GEMZAR [Suspect]
     Active Substance: GEMCITABINE HYDROCHLORIDE
     Indication: PANCREATIC CARCINOMA STAGE IV
     Dosage: 1000 MG, OTHER
     Route: 042

REACTIONS (5)
  - Cholangitis infective [Unknown]
  - Pneumonia aspiration [Fatal]
  - Septic shock [Unknown]
  - Cachexia [Not Recovered/Not Resolved]
  - Pancytopenia [Unknown]
